FAERS Safety Report 14419928 (Version 5)
Quarter: 2019Q1

REPORT INFORMATION
  Report Type: Spontaneous
  Country: US (occurrence: US)
  Receive Date: 20180122
  Receipt Date: 20190130
  Transmission Date: 20190417
  Serious: Yes (Other)
  Sender: FDA-Public Use
  Company Number: US-DSJP-DSU-2017-149990

PATIENT

DRUGS (3)
  1. BENICAR [Suspect]
     Active Substance: OLMESARTAN MEDOXOMIL
     Indication: BLOOD PRESSURE MANAGEMENT
     Dosage: 20 MG, QD
     Route: 048
     Dates: start: 20090909, end: 201106
  2. BENICAR [Suspect]
     Active Substance: OLMESARTAN MEDOXOMIL
     Dosage: 20 MG, QD
     Route: 048
     Dates: start: 201106
  3. BENICAR [Suspect]
     Active Substance: OLMESARTAN MEDOXOMIL
     Dosage: 40 MG, UNK

REACTIONS (11)
  - Gastrooesophageal reflux disease [Recovered/Resolved]
  - Helicobacter test positive [Not Recovered/Not Resolved]
  - Syncope [Not Recovered/Not Resolved]
  - Rectal polyp [Recovered/Resolved]
  - Large intestine polyp [Not Recovered/Not Resolved]
  - Peptic ulcer [Unknown]
  - Sprue-like enteropathy [Recovered/Resolved]
  - Irritable bowel syndrome [Not Recovered/Not Resolved]
  - Haemorrhoids [Unknown]
  - Diverticulum intestinal [Unknown]
  - Gastric ulcer [Unknown]

NARRATIVE: CASE EVENT DATE: 2010
